FAERS Safety Report 23869400 (Version 1)
Quarter: 2024Q2

REPORT INFORMATION
  Report Type: Report from Study
  Country: US (occurrence: US)
  Receive Date: 20240517
  Receipt Date: 20240517
  Transmission Date: 20240716
  Serious: Yes (Other)
  Sender: FDA-Public Use
  Company Number: US-ABBVIE-5759715

PATIENT
  Sex: Female

DRUGS (1)
  1. SKYRIZI [Suspect]
     Active Substance: RISANKIZUMAB-RZAA
     Indication: Crohn^s disease
     Route: 058

REACTIONS (7)
  - Loss of consciousness [Unknown]
  - Anxiety [Unknown]
  - Somnolence [Unknown]
  - Heart rate increased [Unknown]
  - Asthenia [Unknown]
  - Nervousness [Unknown]
  - Injection site haemorrhage [Unknown]
